FAERS Safety Report 11266213 (Version 1)
Quarter: 2015Q3

REPORT INFORMATION
  Report Type: Spontaneous
  Country: US (occurrence: None)
  Receive Date: 20150713
  Receipt Date: 20150713
  Transmission Date: 20151125
  Serious: No
  Sender: FDA-Public Use
  Company Number: None

PATIENT
  Age: 33 Year
  Sex: Female
  Weight: 59 kg

DRUGS (1)
  1. KINEVAC [Suspect]
     Active Substance: SINCALIDE
     Indication: HEPATOBILIARY SCAN
     Dosage: ? 1.2 MCG, 1 HR, INFUSION
     Dates: start: 20150618

REACTIONS (3)
  - Myalgia [None]
  - Influenza like illness [None]
  - Post procedural complication [None]

NARRATIVE: CASE EVENT DATE: 20150618
